FAERS Safety Report 7593687-6 (Version None)
Quarter: 2011Q3

REPORT INFORMATION
  Report Type: 
  Country: None (occurrence: None)
  Receive Date: 20110706
  Receipt Date: 20110621
  Transmission Date: 20111222
  Serious: Yes (Hospitalization, Other)
  Sender: FDA-Public Use
  Company Number: PHHY2011US44906

PATIENT
  Sex: Female

DRUGS (4)
  1. FUROSEMIDE [Suspect]
  2. ANTIBIOTICS [Suspect]
  3. METOPROLOL TARTRATE [Suspect]
  4. TEKTURNA HCT [Suspect]

REACTIONS (7)
  - MUSCLE SPASMS [None]
  - ARTHRITIS [None]
  - BACK PAIN [None]
  - HEART RATE INCREASED [None]
  - ASTHENIA [None]
  - JOINT SWELLING [None]
  - BLOOD PRESSURE DECREASED [None]
